FAERS Safety Report 12544500 (Version 1)
Quarter: 2016Q3

REPORT INFORMATION
  Report Type: Spontaneous
  Country: US (occurrence: US)
  Receive Date: 20160711
  Receipt Date: 20160711
  Transmission Date: 20161109
  Serious: No
  Sender: FDA-Public Use
  Company Number: US-PFIZER INC-2016332353

PATIENT
  Age: 46 Year
  Sex: Female
  Weight: 67.57 kg

DRUGS (2)
  1. TRAMADOL. [Interacting]
     Active Substance: TRAMADOL
     Dosage: 50 MG, AS NEEDED (EVERY 6 HOURS AS NEEDED) (1-2 TIMES A DAY)
     Route: 048
     Dates: end: 20160613
  2. LYRICA [Suspect]
     Active Substance: PREGABALIN
     Dosage: 75 MG, 2X/DAY
     Route: 048

REACTIONS (1)
  - Drug interaction [Unknown]
